FAERS Safety Report 16338686 (Version 9)
Quarter: 2024Q2

REPORT INFORMATION
  Report Type: Other
  Country: US (occurrence: None)
  Receive Date: 20190521
  Receipt Date: 20240404
  Transmission Date: 20240715
  Serious: Yes (Hospitalization, Other)
  Sender: FDA-Public Use
  Company Number: US-ROCHE-2320541

PATIENT
  Age: 73 Year
  Sex: Female
  Weight: 63.56 kg

DRUGS (19)
  1. OCREVUS [Suspect]
     Active Substance: OCRELIZUMAB
     Indication: Relapsing-remitting multiple sclerosis
     Dosage: DATE OF TREATMENT: 20/SEP/2017
     Route: 042
     Dates: start: 20170906
  2. OCREVUS [Suspect]
     Active Substance: OCRELIZUMAB
     Dosage: DATE OF TREATMENT: 07/SEP/2018, 07/MAR/2019, 03/SEP/2019, 05/MAR/2020
     Route: 042
     Dates: start: 20180307, end: 20200910
  3. OCREVUS [Suspect]
     Active Substance: OCRELIZUMAB
     Route: 042
     Dates: start: 20180728
  4. OCREVUS [Suspect]
     Active Substance: OCRELIZUMAB
     Dosage: HALF DOSE
     Route: 042
     Dates: start: 20180907
  5. OCREVUS [Suspect]
     Active Substance: OCRELIZUMAB
     Route: 042
  6. TOPAMAX [Concomitant]
     Active Substance: TOPIRAMATE
     Indication: Headache
     Dosage: HS ;ONGOING: YES
     Route: 048
  7. MELOXICAM [Concomitant]
     Active Substance: MELOXICAM
     Indication: Arthralgia
     Dosage: ONGOING : YES
     Route: 048
  8. VITAMIN D3 [Concomitant]
     Active Substance: CHOLECALCIFEROL
     Route: 048
  9. ESTRACE [Concomitant]
     Active Substance: ESTRADIOL
     Route: 048
  10. IMITREX [Concomitant]
     Active Substance: SUMATRIPTAN SUCCINATE
     Indication: Headache
     Route: 048
  11. PROTONIX [Concomitant]
     Active Substance: PANTOPRAZOLE SODIUM
     Indication: Dyspepsia
     Route: 048
  12. TOPIRAMATE [Concomitant]
     Active Substance: TOPIRAMATE
     Indication: Migraine
     Route: 048
  13. ADDERALL [Concomitant]
     Active Substance: AMPHETAMINE ASPARTATE\AMPHETAMINE SULFATE\DEXTROAMPHETAMINE SACCHARATE\DEXTROAMPHETAMINE SULFATE
  14. B-12 [Concomitant]
  15. BENADRYL ALLERGY [Concomitant]
     Active Substance: DIPHENHYDRAMINE HYDROCHLORIDE
  16. TYLENOL [Concomitant]
     Active Substance: ACETAMINOPHEN
  17. EMGALITY [Concomitant]
     Active Substance: GALCANEZUMAB-GNLM
  18. VITAMIN B12 [Concomitant]
     Active Substance: CYANOCOBALAMIN
  19. ATIVAN [Concomitant]
     Active Substance: LORAZEPAM

REACTIONS (17)
  - Pneumonia [Recovered/Resolved]
  - Tympanic membrane perforation [Unknown]
  - Immunodeficiency [Recovering/Resolving]
  - Hypoacusis [Not Recovered/Not Resolved]
  - Middle ear effusion [Recovered/Resolved]
  - Arthralgia [Not Recovered/Not Resolved]
  - COVID-19 pneumonia [Recovered/Resolved]
  - Balance disorder [Unknown]
  - Peripheral swelling [Not Recovered/Not Resolved]
  - Fatigue [Not Recovered/Not Resolved]
  - Infusion related reaction [Recovered/Resolved]
  - B-lymphocyte count decreased [Not Recovered/Not Resolved]
  - Immunoglobulins decreased [Not Recovered/Not Resolved]
  - Cognitive disorder [Not Recovered/Not Resolved]
  - Confusional state [Unknown]
  - Chest discomfort [Unknown]
  - Hypoaesthesia [Unknown]

NARRATIVE: CASE EVENT DATE: 20180101
